FAERS Safety Report 12433987 (Version 1)
Quarter: 2016Q2

REPORT INFORMATION
  Report Type: Report from Study
  Country: JP (occurrence: JP)
  Receive Date: 20160603
  Receipt Date: 20160603
  Transmission Date: 20160815
  Serious: Yes (Death)
  Sender: FDA-Public Use
  Company Number: JP-SA-2016SA104572

PATIENT
  Age: 55 Year
  Sex: Male
  Weight: 62 kg

DRUGS (10)
  1. PREDONINE [Concomitant]
     Active Substance: PREDNISOLONE\PREDNISOLONE ACETATE\PREDNISOLONE SODIUM SUCCINATE
     Indication: PROPHYLAXIS
     Dosage: WATER SOLUBLE
     Dates: start: 20121015, end: 20121101
  2. CILASTATIN/IMIPENEM [Concomitant]
     Indication: SEPSIS
     Dosage: INTRAVENOUS INFUSION
     Route: 042
     Dates: start: 20121021, end: 20121027
  3. KENKETU ALBUMIN [Concomitant]
     Indication: HYPOALBUMINAEMIA
     Dates: start: 20121028, end: 20121030
  4. THYMOGLOBULINE [Suspect]
     Active Substance: LAPINE T-LYMPHOCYTE IMMUNE GLOBULIN
     Indication: PROPHYLAXIS
     Route: 042
     Dates: start: 20121025, end: 20121025
  5. GRAN [Concomitant]
     Active Substance: FILGRASTIM
     Indication: NEUTROPENIA
     Dates: start: 20121012, end: 20121101
  6. FUROSEMIDE. [Concomitant]
     Active Substance: FUROSEMIDE
     Indication: OEDEMA
     Dates: start: 20121023, end: 20121026
  7. HANP [Concomitant]
     Active Substance: CARPERITIDE
     Indication: CARDIAC FAILURE
     Dates: start: 20121025, end: 20121025
  8. KENKETU ALBUMIN [Concomitant]
     Indication: HYPOALBUMINAEMIA
     Dates: start: 20121024, end: 20121025
  9. ZOSYN [Concomitant]
     Active Substance: PIPERACILLIN SODIUM\TAZOBACTAM SODIUM
     Indication: SEPSIS
     Dates: start: 20121027, end: 20121101
  10. TEICOPLANIN [Concomitant]
     Active Substance: TEICOPLANIN
     Indication: SEPSIS
     Route: 042
     Dates: start: 20121027, end: 20121029

REACTIONS (2)
  - Shock [Recovered/Resolved]
  - Multiple organ dysfunction syndrome [Fatal]

NARRATIVE: CASE EVENT DATE: 20121025
